FAERS Safety Report 10723500 (Version 2)
Quarter: 2015Q1

REPORT INFORMATION
  Report Type: Spontaneous
  Country: US (occurrence: None)
  Receive Date: 20150114
  Receipt Date: 20150130
  Transmission Date: 20150721
  Serious: Yes (Death, Hospitalization)
  Sender: FDA-Public Use
  Company Number: UCM201412-000287

PATIENT
  Age: 26 Year
  Sex: Male

DRUGS (4)
  1. AMLODIPINE [Suspect]
     Active Substance: AMLODIPINE BESYLATE
     Indication: HYPERTENSION
  2. LIPID EMULSION (LIPID EMULSION) (20 PERCENT) (LIPID EMULSION) [Concomitant]
  3. METOPROLOL [Suspect]
     Active Substance: METOPROLOL
     Indication: HYPERTENSION
  4. LISINOPRIL. [Suspect]
     Active Substance: LISINOPRIL
     Indication: HYPERTENSION

REACTIONS (11)
  - Fluid overload [None]
  - Bradycardia [None]
  - Acute respiratory failure [None]
  - Acute kidney injury [None]
  - Intentional overdose [None]
  - Acidosis [None]
  - General physical health deterioration [None]
  - Hypotension [None]
  - Hyperlipidaemia [None]
  - Pulmonary oedema [None]
  - Continuous haemodiafiltration [None]
